FAERS Safety Report 10697354 (Version 1)
Quarter: 2015Q1

REPORT INFORMATION
  Report Type: Spontaneous
  Country: US (occurrence: None)
  Receive Date: 20150107
  Receipt Date: 20150107
  Transmission Date: 20150721
  Serious: Yes (Hospitalization)
  Sender: FDA-Public Use
  Company Number: None

PATIENT
  Age: 76 Year
  Sex: Male
  Weight: 63.5 kg

DRUGS (2)
  1. METOPROLOL 50MG [Suspect]
     Active Substance: METOPROLOL
     Indication: HYPERTENSION
     Dosage: 1 PILL PER DAY
     Route: 048
     Dates: start: 20141103, end: 20141128
  2. THORAZINE [Suspect]
     Active Substance: CHLORPROMAZINE
     Indication: HICCUPS
     Dosage: 1 PILL
     Route: 048
     Dates: start: 20141227

REACTIONS (3)
  - Feeling cold [None]
  - Arthritis [None]
  - Pain [None]

NARRATIVE: CASE EVENT DATE: 20150105
